FAERS Safety Report 7763707-4 (Version None)
Quarter: 2011Q3

REPORT INFORMATION
  Report Type: 
  Country: None (occurrence: None)
  Receive Date: 20110921
  Receipt Date: 20110914
  Transmission Date: 20111222
  Serious: No
  Sender: FDA-Public Use
  Company Number: US-BIOGENIDEC-2011BI035534

PATIENT
  Age: 59 Year
  Sex: Female

DRUGS (2)
  1. ESTROGENIC SUBSTANCE [Concomitant]
  2. TYSABRI [Suspect]
     Indication: MULTIPLE SCLEROSIS
     Route: 042
     Dates: start: 20070129

REACTIONS (3)
  - VAGINAL INFECTION [None]
  - MEMORY IMPAIRMENT [None]
  - FATIGUE [None]
